FAERS Safety Report 9206195 (Version 2)
Quarter: 2013Q3

REPORT INFORMATION
  Report Type: Spontaneous
  Country: BR (occurrence: BR)
  Receive Date: 20130403
  Receipt Date: 20130906
  Transmission Date: 20140515
  Serious: Yes (Hospitalization, Other)
  Sender: FDA-Public Use
  Company Number: PHHY2013BR030839

PATIENT
  Sex: Female
  Weight: 56 kg

DRUGS (12)
  1. DIOVAN [Suspect]
     Indication: HYPERTENSION
     Dosage: 320 MG, DAILY
     Route: 048
  2. DIOVAN [Suspect]
     Dosage: 320 MG, (AT NIGHT WHEN BLOOD PRESSURE INCREASE)
     Route: 048
  3. ENALAPRIL [Suspect]
     Indication: BLOOD PRESSURE FLUCTUATION
     Dosage: 2 DF, DAILY
     Route: 048
  4. SUSTRATE [Concomitant]
     Indication: CARDIAC DISORDER
     Dosage: 1 DF IN THE MORNING
     Route: 048
  5. OMEPRAZOLE [Concomitant]
     Indication: GASTRIC ULCER
     Dosage: 20 MG, IN THE MORNING
     Route: 048
  6. MIRTAZAPINE [Concomitant]
     Indication: DEPRESSION
     Dosage: 45 MG, AT NIGHT
     Route: 048
  7. SEROQUEL [Concomitant]
     Indication: DEPRESSION
     Dosage: 50 MG, AT NIGHT
     Route: 048
  8. SERTRALINE [Concomitant]
     Indication: DEPRESSION
     Dosage: 50 MG, IN THE MORNING
     Route: 048
  9. NATRILIX SR [Concomitant]
     Indication: HYPERTENSION
     Dosage: 1 DF, IN THE MORNING
     Route: 048
  10. AMLODIPINE [Concomitant]
     Indication: HYPERTENSION
     Dosage: 5 MG, IN THE MORNING
     Route: 048
  11. AAS [Concomitant]
     Indication: ANTICOAGULANT THERAPY
     Dosage: 100 MG, DURING THE LUNCH
     Route: 048
  12. SIMVASTATIN [Concomitant]
     Indication: BLOOD CHOLESTEROL INCREASED
     Dosage: 20 MG, DURING THE LUNCH
     Route: 048

REACTIONS (7)
  - Emphysema [Recovered/Resolved]
  - Wheezing [Recovered/Resolved]
  - Dyspnoea [Recovered/Resolved]
  - Pyrexia [Recovered/Resolved]
  - Blood pressure fluctuation [Not Recovered/Not Resolved]
  - Decreased appetite [Not Recovered/Not Resolved]
  - Nausea [Not Recovered/Not Resolved]
